FAERS Safety Report 26181082 (Version 1)
Quarter: 2025Q4

REPORT INFORMATION
  Report Type: Spontaneous
  Country: CN (occurrence: CN)
  Receive Date: 20251221
  Receipt Date: 20251221
  Transmission Date: 20260118
  Serious: Yes (Other)
  Sender: MYLAN
  Company Number: CN-MYLANLABS-2025M1107934

PATIENT
  Age: 28 Year
  Sex: Male

DRUGS (8)
  1. AZELASTINE [Suspect]
     Active Substance: AZELASTINE
     Indication: Conjunctivitis
     Dosage: 1 GTT DROPS, BID (1 DROP TWICE DAILY)
     Dates: start: 20251210, end: 20251211
  2. AZELASTINE [Suspect]
     Active Substance: AZELASTINE
     Dosage: 1 GTT DROPS, BID (1 DROP TWICE DAILY)
     Route: 047
     Dates: start: 20251210, end: 20251211
  3. AZELASTINE [Suspect]
     Active Substance: AZELASTINE
     Dosage: 1 GTT DROPS, BID (1 DROP TWICE DAILY)
     Route: 047
     Dates: start: 20251210, end: 20251211
  4. AZELASTINE [Suspect]
     Active Substance: AZELASTINE
     Dosage: 1 GTT DROPS, BID (1 DROP TWICE DAILY)
     Dates: start: 20251210, end: 20251211
  5. PRANOPROFEN [Suspect]
     Active Substance: PRANOPROFEN
     Indication: Conjunctivitis
     Dosage: 1 GTT DROPS, QID (1 DROP FOUR TIMES A DAY)
     Dates: start: 20251210, end: 20251211
  6. PRANOPROFEN [Suspect]
     Active Substance: PRANOPROFEN
     Dosage: 1 GTT DROPS, QID (1 DROP FOUR TIMES A DAY)
     Route: 047
     Dates: start: 20251210, end: 20251211
  7. PRANOPROFEN [Suspect]
     Active Substance: PRANOPROFEN
     Dosage: 1 GTT DROPS, QID (1 DROP FOUR TIMES A DAY)
     Route: 047
     Dates: start: 20251210, end: 20251211
  8. PRANOPROFEN [Suspect]
     Active Substance: PRANOPROFEN
     Dosage: 1 GTT DROPS, QID (1 DROP FOUR TIMES A DAY)
     Dates: start: 20251210, end: 20251211

REACTIONS (2)
  - Periorbital haematoma [Recovering/Resolving]
  - Vision blurred [Recovering/Resolving]

NARRATIVE: CASE EVENT DATE: 20251211
